FAERS Safety Report 19192045 (Version 1)
Quarter: 2021Q2

REPORT INFORMATION
  Report Type: Spontaneous
  Country: US (occurrence: US)
  Receive Date: 20210429
  Receipt Date: 20210429
  Transmission Date: 20210717
  Serious: Yes (Hospitalization, Other)
  Sender: FDA-Public Use
  Company Number: US-MELINTA THERAPEUTICS, LLC-US-MLNT-21-00044

PATIENT
  Age: 38 Year
  Sex: Male

DRUGS (18)
  1. CEFTAZIDIME/AVIBACTAM [Suspect]
     Active Substance: AVIBACTAM SODIUM\CEFTAZIDIME
     Indication: SEPTIC PULMONARY EMBOLISM
  2. MINOCYCLINE [Suspect]
     Active Substance: MINOCYCLINE HYDROCHLORIDE
     Indication: SEPTIC PULMONARY EMBOLISM
  3. LEVOFLOXACIN. [Suspect]
     Active Substance: LEVOFLOXACIN
     Indication: ENDOCARDITIS
  4. METRONIDAZOLE. [Suspect]
     Active Substance: METRONIDAZOLE
     Indication: ENDOCARDITIS
  5. METRONIDAZOLE. [Suspect]
     Active Substance: METRONIDAZOLE
     Indication: STENOTROPHOMONAS SEPSIS
     Dosage: NOT PROVIDED.
  6. MINOCYCLINE [Suspect]
     Active Substance: MINOCYCLINE HYDROCHLORIDE
     Indication: STENOTROPHOMONAS SEPSIS
     Dosage: NOT PROVIDED.
  7. LEVOFLOXACIN. [Suspect]
     Active Substance: LEVOFLOXACIN
     Indication: SEPTIC PULMONARY EMBOLISM
  8. PIPERACILLIN AND TAZOBACTAM [Suspect]
     Active Substance: PIPERACILLIN SODIUM\TAZOBACTAM SODIUM
     Indication: STENOTROPHOMONAS SEPSIS
     Dosage: NOT PROVIDED.
  9. AZTREONAM. [Suspect]
     Active Substance: AZTREONAM
     Indication: STENOTROPHOMONAS SEPSIS
     Dosage: NOT PROVIDED.
  10. MINOCYCLINE [Suspect]
     Active Substance: MINOCYCLINE HYDROCHLORIDE
     Indication: ENDOCARDITIS
  11. LEVOFLOXACIN. [Suspect]
     Active Substance: LEVOFLOXACIN
     Indication: STENOTROPHOMONAS SEPSIS
     Dosage: NOT PROVIDED.
  12. PIPERACILLIN AND TAZOBACTAM [Suspect]
     Active Substance: PIPERACILLIN SODIUM\TAZOBACTAM SODIUM
     Indication: SEPTIC PULMONARY EMBOLISM
  13. AZTREONAM. [Suspect]
     Active Substance: AZTREONAM
     Indication: SEPTIC PULMONARY EMBOLISM
  14. CEFTAZIDIME/AVIBACTAM [Suspect]
     Active Substance: AVIBACTAM SODIUM\CEFTAZIDIME
     Indication: STENOTROPHOMONAS SEPSIS
     Dosage: NOT PROVIDED.
  15. PIPERACILLIN AND TAZOBACTAM [Suspect]
     Active Substance: PIPERACILLIN SODIUM\TAZOBACTAM SODIUM
     Indication: STAPHYLOCOCCAL INFECTION
  16. AZTREONAM. [Suspect]
     Active Substance: AZTREONAM
     Indication: ENDOCARDITIS
  17. CEFTAZIDIME/AVIBACTAM [Suspect]
     Active Substance: AVIBACTAM SODIUM\CEFTAZIDIME
     Indication: ENDOCARDITIS
  18. METRONIDAZOLE. [Suspect]
     Active Substance: METRONIDAZOLE
     Indication: SEPTIC PULMONARY EMBOLISM

REACTIONS (3)
  - Tricuspid valve replacement [Recovered/Resolved]
  - Off label use [Recovered/Resolved]
  - Ascites [Recovered/Resolved]
